FAERS Safety Report 6665988-7 (Version None)
Quarter: 2010Q2

REPORT INFORMATION
  Report Type: 
  Country: None (occurrence: None)
  Receive Date: 20100402
  Receipt Date: 20100324
  Transmission Date: 20101027
  Serious: Yes (Hospitalization, Other)
  Sender: FDA-Public Use
  Company Number: JP-BRISTOL-MYERS SQUIBB COMPANY-14313365

PATIENT
  Age: 65 Year
  Sex: Female
  Weight: 64 kg

DRUGS (9)
  1. TAXOL [Interacting]
     Indication: OVARIAN CANCER
     Dosage: (180MG/M2)
     Route: 041
     Dates: start: 20080109
  2. WARFARIN POTASSIUM [Interacting]
     Indication: PULMONARY EMBOLISM
     Dosage: STARTED WITH 1MG INCREASED TO 1.5MG+THEN REDUCED WITH 1.25MG 7 DISCT.RESTARTED WITH 1.5MG/D
     Route: 048
     Dates: start: 20071201
  3. CARBOMERCK [Suspect]
     Indication: OVARIAN CANCER
     Dosage: DAY32 COURSE 1 (AUC5)
     Route: 041
     Dates: start: 20080109
  4. CARBOPLATIN [Concomitant]
  5. GRANISETRON HCL [Concomitant]
  6. RANITIDINE HCL [Concomitant]
  7. METOCLOPRAMIDE [Concomitant]
  8. DEXAMETHASONE ACETATE [Concomitant]
  9. BUCOLOME [Concomitant]
     Dosage: CAPS
     Route: 048
     Dates: start: 20071201

REACTIONS (8)
  - DEEP VEIN THROMBOSIS [None]
  - EPISTAXIS [None]
  - HAEMATURIA [None]
  - HAEMORRHAGIC DISORDER [None]
  - INTERNATIONAL NORMALISED RATIO INCREASED [None]
  - METASTASES TO LYMPH NODES [None]
  - PULMONARY EMBOLISM [None]
  - VAGINAL HAEMORRHAGE [None]
